FAERS Safety Report 17191150 (Version 2)
Quarter: 2020Q1

REPORT INFORMATION
  Report Type: Other
  Country: IT (occurrence: IT)
  Receive Date: 20191223
  Receipt Date: 20200113
  Transmission Date: 20200409
  Serious: Yes (Hospitalization)
  Sender: FDA-Public Use
  Company Number: IT-GE HEALTHCARE LIFE SCIENCES-2019CSU006386

PATIENT

DRUGS (4)
  1. CLARICYCLIC [Suspect]
     Active Substance: GADOTERATE MEGLUMINE
     Indication: OSTEOARTHRITIS
  2. IOPAMIRO [Suspect]
     Active Substance: IOPAMIDOL
     Indication: ARTHROGRAM
     Dosage: 3 ML, SINGLE
     Route: 014
     Dates: start: 20191107, end: 20191107
  3. IOPAMIRO [Suspect]
     Active Substance: IOPAMIDOL
     Indication: OSTEOARTHRITIS
  4. CLARICYCLIC [Suspect]
     Active Substance: GADOTERATE MEGLUMINE
     Indication: ARTHROGRAM
     Dosage: 9 ML
     Route: 014
     Dates: start: 20191107, end: 20191107

REACTIONS (3)
  - Product deposit [Recovered/Resolved]
  - Off label use [Recovered/Resolved]
  - Arthritis [Not Recovered/Not Resolved]

NARRATIVE: CASE EVENT DATE: 20191107
